FAERS Safety Report 12090266 (Version 1)
Quarter: 2016Q1

REPORT INFORMATION
  Report Type: Not Available
  Country: None (occurrence: US)
  Receive Date: 20160218
  Receipt Date: 20160218
  Transmission Date: 20160526
  Serious: No
  Sender: FDA-Public Use
  Company Number: US-AKORN-22979

PATIENT

DRUGS (1)
  1. TROPICAMIDE OPHTHALMIC SOLUTION, USP [Suspect]
     Active Substance: TROPICAMIDE

REACTIONS (3)
  - Drug ineffective [None]
  - Product quality issue [None]
  - Pupil fixed [None]
